FAERS Safety Report 17477266 (Version 1)
Quarter: 2020Q1

REPORT INFORMATION
  Report Type: Report from Study
  Country: CA (occurrence: CA)
  Receive Date: 20200228
  Receipt Date: 20200228
  Transmission Date: 20200409
  Serious: Yes (Hospitalization)
  Sender: FDA-Public Use
  Company Number: CA-JNJFOC-20190840141

PATIENT
  Sex: Male

DRUGS (1)
  1. STELARA [Suspect]
     Active Substance: USTEKINUMAB
     Indication: CROHN^S DISEASE
     Dosage: STRENGTH = 90 MG
     Route: 058
     Dates: start: 20151017, end: 20190715

REACTIONS (4)
  - Product use issue [Unknown]
  - Pancreatitis relapsing [Recovered/Resolved]
  - Cholelithiasis [Recovered/Resolved]
  - Off label use [Unknown]
